FAERS Safety Report 9052557 (Version 1)
Quarter: 2013Q1

REPORT INFORMATION
  Report Type: Spontaneous
  Country: FR (occurrence: FR)
  Receive Date: 20130207
  Receipt Date: 20130207
  Transmission Date: 20140127
  Serious: Yes (Hospitalization)
  Sender: FDA-Public Use
  Company Number: PHHY2013FR009229

PATIENT
  Age: 63 Year
  Sex: Male

DRUGS (19)
  1. NEORAL [Suspect]
     Dates: start: 201206
  2. VIDAZA [Suspect]
     Dosage: 100 MG, UNK
     Dates: end: 201205
  3. MELPHALAN [Suspect]
     Dates: start: 201206
  4. MAGNESIUM [Concomitant]
  5. SOLUPRED [Concomitant]
  6. INEXIUM//ESOMEPRAZOLE MAGNESIUM [Concomitant]
  7. ZELITREX [Concomitant]
  8. NOVONORM [Concomitant]
  9. OMEXEL [Concomitant]
  10. ATARAX [Concomitant]
  11. SERETIDE [Concomitant]
  12. SPIRIVA [Concomitant]
  13. LEDERFOLINE [Concomitant]
  14. FANSIDAR [Concomitant]
  15. NOXAFIL [Concomitant]
  16. ESIDREX [Concomitant]
  17. VITAMIN B 12 [Concomitant]
  18. VENTOLINE [Concomitant]
  19. GAMMANORM [Concomitant]

REACTIONS (2)
  - Sensorimotor disorder [Unknown]
  - Monoparesis [Unknown]
